FAERS Safety Report 5988621-6 (Version None)
Quarter: 2008Q4

REPORT INFORMATION
  Report Type: 
  Country: None (occurrence: None)
  Receive Date: 20081204
  Receipt Date: 20081119
  Transmission Date: 20090506
  Serious: Yes (Other)
  Sender: FDA-Public Use
  Company Number: 2008S1020816

PATIENT
  Age: 60 Year
  Sex: Male

DRUGS (7)
  1. PROCYCLIDINE HYDROCHLORIDE 2MG TAB [Suspect]
     Indication: RESTLESSNESS
     Dosage: 5 MG; TWICE A DAY; ORAL
     Route: 048
  2. AMLODIPINE [Suspect]
     Indication: HYPERTENSION
     Dosage: ORAL
     Route: 048
  3. FELODIPINE [Suspect]
     Indication: HYPERTENSION
     Dosage: ORAL
     Route: 048
  4. CANDESARTAN CILEXETIL [Suspect]
     Indication: HYPERTENSION
     Dosage: ORAL
     Route: 048
  5. CELECTOL [Suspect]
     Indication: HYPERTENSION
     Dosage: ORAL
     Route: 048
  6. RAMIPRIL [Concomitant]
     Indication: HYPERTENSION
     Dosage: ORAL
     Route: 048
  7. BENDROFLUMETHIAZIDE (BENFOFLUMETHIAZIDE) [Suspect]
     Indication: HYPERTENSION
     Dosage: ORAL

REACTIONS (4)
  - DRUG DEPENDENCE [None]
  - HYPERTENSION [None]
  - HYPOAESTHESIA [None]
  - JOINT SWELLING [None]
